FAERS Safety Report 8352502-3 (Version None)
Quarter: 2012Q2

REPORT INFORMATION
  Report Type: 
  Country: None (occurrence: None)
  Receive Date: 20120509
  Receipt Date: 20120423
  Transmission Date: 20120825
  Serious: Yes (Hospitalization, Other)
  Sender: FDA-Public Use
  Company Number: THQ2011A05663

PATIENT
  Age: 34 Year
  Sex: Female

DRUGS (10)
  1. NPLATE [Suspect]
     Indication: IDIOPATHIC THROMBOCYTOPENIC PURPURA
     Dosage: 1 MG/KG, SUBCUTANEOUS
     Route: 058
     Dates: start: 20100420, end: 20100920
  2. ANTI-D IMMUNOGLOBULIN NORETHISTERONE [Concomitant]
  3. IMMUNOGLOBULINS [Suspect]
     Indication: AUTOIMMUNE THROMBOCYTOPENIA
     Dosage: 375 M/M2 )(375 MG/M2, 2 IN 1 WK), INTRAVENOUS
     Route: 042
     Dates: start: 20100922, end: 20100923
  4. IMMUNOGLOBULINS [Suspect]
     Indication: HAEMATOLOGY TEST ABNORMAL
     Dosage: 375 M/M2 )(375 MG/M2, 2 IN 1 WK), INTRAVENOUS
     Route: 042
     Dates: start: 20100922, end: 20100923
  5. TRANEXAMIC ACID [Suspect]
     Indication: AUTOIMMUNE THROMBOCYTOPENIA
     Dosage: 4 DF (1 DF, 4 IN 1 D), PER ORAL
     Route: 048
     Dates: start: 20100922, end: 20100928
  6. RITUXIMAB [Suspect]
     Indication: HAEMATOLOGY TEST ABNORMAL
     Dosage: 375 MG/M2 (375 MG/M2, 2 IN 1 WK) INTRAVENOUS DRIP
     Route: 041
     Dates: start: 20100917, end: 20100924
  7. RITUXIMAB [Suspect]
     Indication: AUTOIMMUNE THROMBOCYTOPENIA
     Dosage: 375 MG/M2 (375 MG/M2, 2 IN 1 WK) INTRAVENOUS DRIP
     Route: 041
     Dates: start: 20100917, end: 20100924
  8. DEXAMETHASONE [Suspect]
     Indication: ANTIEMETIC SUPPORTIVE CARE
     Dosage: PER ORAL
     Route: 048
     Dates: start: 20100905, end: 20100910
  9. VINCRISTINE [Concomitant]
  10. LANSOPRAZOLE [Suspect]
     Indication: GASTROOESOPHAGEAL REFLUX PROPHYLAXIS
     Dosage: 30 MG (30 MG, 1 IN 1 D), PER ORAL
     Route: 048
     Dates: start: 20100907, end: 20100928

REACTIONS (13)
  - PURPURA [None]
  - MELAENA [None]
  - VAGINAL HAEMORRHAGE [None]
  - RASH ERYTHEMATOUS [None]
  - HAEMATOCRIT DECREASED [None]
  - DRUG ERUPTION [None]
  - RASH MACULO-PAPULAR [None]
  - ARTHRALGIA [None]
  - RED BLOOD CELL COUNT DECREASED [None]
  - HAEMOGLOBIN DECREASED [None]
  - HAEMORRHAGE [None]
  - BLOOD BLISTER [None]
  - RECTAL HAEMORRHAGE [None]
